FAERS Safety Report 4319922-5 (Version None)
Quarter: 2004Q1

REPORT INFORMATION
  Report Type: 
  Country: None (occurrence: None)
  Receive Date: 20040316
  Receipt Date: 20040304
  Transmission Date: 20041129
  Serious: No
  Sender: FDA-Public Use
  Company Number: 204924

PATIENT
  Age: 12 Year
  Sex: Female

DRUGS (4)
  1. NUTROPIN [Suspect]
     Indication: GROWTH HORMONE DEFICIENCY
     Dosage: 3.3 MG, QD, SUBCUTANEOUS
     Route: 058
     Dates: start: 20000907
  2. DDAVP (DESMOPRESSIN ACETATE) [Concomitant]
  3. HYDROCORTISONE [Concomitant]
  4. LEVOXYL [Concomitant]

REACTIONS (1)
  - OSTEOCHONDROSIS [None]
